FAERS Safety Report 5649299-4 (Version None)
Quarter: 2008Q1

REPORT INFORMATION
  Report Type: 
  Country: None (occurrence: None)
  Receive Date: 20080304
  Receipt Date: 20071207
  Transmission Date: 20080703
  Serious: No
  Sender: FDA-Public Use
  Company Number: US-BAYER-200716827NA

PATIENT
  Age: 59 Year
  Sex: Female
  Weight: 62 kg

DRUGS (2)
  1. MAGNEVIST [Suspect]
     Indication: NUCLEAR MAGNETIC RESONANCE IMAGING
     Dosage: UNIT DOSE: 13 ML
     Route: 042
     Dates: start: 20071206, end: 20071206
  2. VICODIN [Concomitant]
     Indication: CLAUSTROPHOBIA
     Route: 048

REACTIONS (5)
  - DRY MOUTH [None]
  - FATIGUE [None]
  - HEADACHE [None]
  - SOMNOLENCE [None]
  - THROAT IRRITATION [None]
